FAERS Safety Report 11775218 (Version 2)
Quarter: 2017Q2

REPORT INFORMATION
  Report Type: Spontaneous
  Country: US (occurrence: US)
  Receive Date: 20151124
  Receipt Date: 20170530
  Transmission Date: 20170829
  Serious: Yes (Other)
  Sender: FDA-Public Use
  Company Number: US-JNJFOC-20151110659

PATIENT
  Age: 34 Year
  Sex: Male

DRUGS (2)
  1. ACETAMINOPHEN. [Suspect]
     Active Substance: ACETAMINOPHEN
     Route: 045
  2. ACETAMINOPHEN. [Suspect]
     Active Substance: ACETAMINOPHEN
     Indication: OROPHARYNGEAL PAIN
     Dosage: 40 CRUSHED TABLETS PER DAY
     Route: 045

REACTIONS (6)
  - Drug use disorder [Unknown]
  - Nasal necrosis [Recovered/Resolved]
  - Dysphagia [Recovered/Resolved]
  - Stomatitis necrotising [Recovered/Resolved]
  - Extra dose administered [Recovered/Resolved]
  - Intentional product use issue [Unknown]
